FAERS Safety Report 24307124 (Version 1)
Quarter: 2024Q3

REPORT INFORMATION
  Report Type: Report from Study
  Country: VN (occurrence: VN)
  Receive Date: 20240911
  Receipt Date: 20240911
  Transmission Date: 20241017
  Serious: Yes (Death, Other)
  Sender: PFIZER
  Company Number: VN-TAKEDA-2024TUS088785

PATIENT
  Age: 28 Year
  Sex: Male

DRUGS (1)
  1. ADCETRIS [Suspect]
     Active Substance: BRENTUXIMAB VEDOTIN
     Indication: Hodgkin^s disease refractory
     Dosage: 106 MILLIGRAM
     Route: 042
     Dates: start: 20240528

REACTIONS (1)
  - Death [Fatal]

NARRATIVE: CASE EVENT DATE: 20240826
